FAERS Safety Report 4988642-6 (Version None)
Quarter: 2006Q2

REPORT INFORMATION
  Report Type: 
  Country: None (occurrence: None)
  Receive Date: 20060426
  Receipt Date: 20060418
  Transmission Date: 20061013
  Serious: Yes (Hospitalization)
  Sender: FDA-Public Use
  Company Number: S06-CAN-01440-01

PATIENT
  Age: 49 Year
  Sex: Male

DRUGS (4)
  1. TIAZAC XC (DILTIAZEM HYDROCHLORIDE) [Suspect]
     Dosage: 360 MG QD PO
     Route: 048
     Dates: start: 20051210
  2. ACTOS [Concomitant]
  3. METFORMIN [Concomitant]
  4. ASPIRIN [Concomitant]

REACTIONS (1)
  - DYSPNOEA [None]
